FAERS Safety Report 17537103 (Version 1)
Quarter: 2020Q1

REPORT INFORMATION
  Report Type: Spontaneous
  Country: ES (occurrence: ES)
  Receive Date: 20200313
  Receipt Date: 20200313
  Transmission Date: 20200409
  Serious: Yes (Other)
  Sender: FDA-Public Use
  Company Number: ES-GLAXOSMITHKLINE-ES2020041516

PATIENT
  Age: 32 Year
  Sex: Male
  Weight: 94 kg

DRUGS (1)
  1. VALTREX [Suspect]
     Active Substance: VALACYCLOVIR HYDROCHLORIDE
     Indication: GENITAL HERPES
     Dosage: 3 TIMES A DAY REDUCED DOSE TO 2 TIMES A DAY
     Route: 048
     Dates: start: 20200207

REACTIONS (1)
  - Headache [Unknown]

NARRATIVE: CASE EVENT DATE: 202002
